FAERS Safety Report 11336727 (Version 2)
Quarter: 2015Q3

REPORT INFORMATION
  Report Type: Spontaneous
  Country: IT (occurrence: IT)
  Receive Date: 20150804
  Receipt Date: 20150814
  Transmission Date: 20151125
  Serious: Yes (Life-Threatening, Hospitalization)
  Sender: FDA-Public Use
  Company Number: IT-SA-2015SA111953

PATIENT
  Age: 26 Year
  Sex: Female

DRUGS (6)
  1. FERLIXIT [Suspect]
     Active Substance: SODIUM FERRIC GLUCONATE COMPLEX
     Indication: ANAEMIA
     Dosage: 62.5 MG/5 ML SOLUTION FOR ORAL AND IV USE 5 VIALS OF 5 ML
     Route: 042
     Dates: start: 20150627, end: 20150627
  2. FERLIXIT [Suspect]
     Active Substance: SODIUM FERRIC GLUCONATE COMPLEX
     Indication: ANAEMIA
     Route: 065
     Dates: start: 20150525, end: 20150622
  3. FERLIXIT [Suspect]
     Active Substance: SODIUM FERRIC GLUCONATE COMPLEX
     Indication: ANAEMIA
     Route: 065
     Dates: start: 20150525, end: 20150622
  4. FERLIXIT [Suspect]
     Active Substance: SODIUM FERRIC GLUCONATE COMPLEX
     Indication: ANAEMIA
     Dosage: 62.5 MG/5 ML SOLUTION FOR ORAL AND IV USE 5 VIALS OF 5 ML
     Route: 042
     Dates: start: 20150627, end: 20150627
  5. FERLIXIT [Suspect]
     Active Substance: SODIUM FERRIC GLUCONATE COMPLEX
     Indication: ANAEMIA
     Route: 065
     Dates: start: 20150525, end: 20150622
  6. FLUXUM [Concomitant]
     Dosage: 4.250 IU AXA INJECTABLE SOLUTION FOR SC USE 6 PREFILLED SYRINGES 0.4 M
     Route: 058
     Dates: start: 20150515, end: 20150715

REACTIONS (11)
  - Ejection fraction decreased [Recovering/Resolving]
  - Anaphylactic shock [Recovered/Resolved]
  - Skin reaction [Recovered/Resolved]
  - Echocardiogram abnormal [Recovering/Resolving]
  - Hypotension [Recovered/Resolved]
  - Ventricular hypokinesia [Recovering/Resolving]
  - Acute pulmonary oedema [Recovered/Resolved]
  - Systolic dysfunction [Recovering/Resolving]
  - Cardiomyopathy [Recovering/Resolving]
  - Mitral valve incompetence [Recovering/Resolving]
  - Vomiting [Recovered/Resolved]

NARRATIVE: CASE EVENT DATE: 20150627
